FAERS Safety Report 4996442-6 (Version None)
Quarter: 2006Q2

REPORT INFORMATION
  Report Type: 
  Country: None (occurrence: None)
  Receive Date: 20060505
  Receipt Date: 20060420
  Transmission Date: 20061013
  Serious: Yes (Hospitalization)
  Sender: FDA-Public Use
  Company Number: MESA-2006-004

PATIENT

DRUGS (1)
  1. CANASA [Suspect]

REACTIONS (2)
  - ADVERSE EVENT [None]
  - HOSPITALISATION [None]
